FAERS Safety Report 8135770-2 (Version None)
Quarter: 2012Q1

REPORT INFORMATION
  Report Type: 
  Country: None (occurrence: None)
  Receive Date: 20120214
  Receipt Date: 20120130
  Transmission Date: 20120608
  Serious: Yes (Hospitalization, Other)
  Sender: FDA-Public Use
  Company Number: US-WATSON-2012-01474

PATIENT
  Sex: Female
  Weight: 84.807 kg

DRUGS (2)
  1. FENTANYL-100 [Suspect]
     Indication: PAIN
     Dosage: ONE PATCH EVERY 72 HOURS
     Route: 062
     Dates: start: 20111201, end: 20120112
  2. FENTANYL-25 [Suspect]
     Indication: PAIN
     Dosage: TWO PATCHES EVERY 72 HOURS
     Route: 062
     Dates: start: 20111201, end: 20111201

REACTIONS (2)
  - UNRESPONSIVE TO STIMULI [None]
  - ACCIDENTAL OVERDOSE [None]
